FAERS Safety Report 4837286-5 (Version None)
Quarter: 2005Q4

REPORT INFORMATION
  Report Type: 
  Country: None (occurrence: None)
  Receive Date: 20051122
  Receipt Date: 20051115
  Transmission Date: 20060501
  Serious: Yes (Other)
  Sender: FDA-Public Use
  Company Number: HQWYE585917NOV05

PATIENT
  Age: 60 Year
  Sex: Female

DRUGS (2)
  1. ETODOLAC [Suspect]
     Dosage: 200 MG 1X PER 1 DAY
     Route: 048
     Dates: start: 20051108, end: 20051109
  2. SOLON (SOFALCONE) [Concomitant]

REACTIONS (1)
  - DRUG ERUPTION [None]
